FAERS Safety Report 4929460-4 (Version None)
Quarter: 2006Q1

REPORT INFORMATION
  Report Type: 
  Country: None (occurrence: None)
  Receive Date: 20060224
  Receipt Date: 20060213
  Transmission Date: 20060701
  Serious: Yes (Hospitalization)
  Sender: FDA-Public Use
  Company Number: 2006022319

PATIENT
  Age: 35 Year
  Sex: Female

DRUGS (2)
  1. CYTOTEC [Suspect]
     Indication: ABORTION INDUCED
     Dosage: 200 MCG (200 MCG, 1 IN 1 TOTAL), ORAL
     Route: 048
     Dates: start: 20051207, end: 20051207
  2. MIFEPRISTONE (MIFEPRISTONE) [Suspect]
     Indication: ABORTION INDUCED
     Dosage: 200 MG (200 MG, 1 IN 1 TOTAL), ORAL
     Route: 048
     Dates: start: 20051207, end: 20051207

REACTIONS (4)
  - DRUG EXPOSURE DURING PREGNANCY [None]
  - FEELING ABNORMAL [None]
  - NERVOUS SYSTEM DISORDER [None]
  - SENSATION OF HEAVINESS [None]
